FAERS Safety Report 25236369 (Version 2)
Quarter: 2025Q2

REPORT INFORMATION
  Report Type: Spontaneous
  Country: CN (occurrence: CN)
  Receive Date: 20250424
  Receipt Date: 20250425
  Transmission Date: 20250717
  Serious: No
  Sender: EISAI
  Company Number: CN-Eisai-EC-2025-187723

PATIENT
  Age: 62 Year
  Sex: Male

DRUGS (1)
  1. LENVATINIB [Suspect]
     Active Substance: LENVATINIB
     Indication: Hepatic neoplasm
     Dates: start: 20250314, end: 20250408

REACTIONS (1)
  - Palmar-plantar erythrodysaesthesia syndrome [Not Recovered/Not Resolved]

NARRATIVE: CASE EVENT DATE: 20250321
